FAERS Safety Report 5212051-8 (Version None)
Quarter: 2007Q1

REPORT INFORMATION
  Report Type: 
  Country: None (occurrence: None)
  Receive Date: 20070118
  Receipt Date: 20070111
  Transmission Date: 20070707
  Serious: Yes (Other)
  Sender: FDA-Public Use
  Company Number: US-ELI_LILLY_AND_COMPANY-US200607003748

PATIENT
  Age: 67 Year
  Sex: Female

DRUGS (11)
  1. HUMALOG [Suspect]
  2. CLARITIN                                /USA/ [Concomitant]
  3. ALPHAGAN [Concomitant]
  4. TAPAZOLE [Concomitant]
  5. ASPIRIN [Concomitant]
  6. LANTUS [Concomitant]
  7. UNIVASC [Concomitant]
  8. LEXAPRO                                 /USA/ [Concomitant]
  9. HEMATINIC FACTORS [Concomitant]
  10. BYETTA [Concomitant]
     Dosage: 5 UG, 2/D
     Route: 058
     Dates: start: 20050913, end: 20051012
  11. BYETTA [Concomitant]
     Dosage: 10 UG, 2/D
     Route: 058
     Dates: start: 20051013, end: 20060627

REACTIONS (2)
  - CARCINOID TUMOUR OF THE STOMACH [None]
  - PERNICIOUS ANAEMIA [None]
